FAERS Safety Report 5760250-9 (Version None)
Quarter: 2008Q2

REPORT INFORMATION
  Report Type: 
  Country: None (occurrence: None)
  Receive Date: 20080602
  Receipt Date: 20080526
  Transmission Date: 20081010
  Serious: Yes (Death)
  Sender: FDA-Public Use
  Company Number: 008-C5013-08020003

PATIENT
  Age: 73 Year
  Sex: Male
  Weight: 68 kg

DRUGS (3)
  1. CC-5013 (LENALIDOMIDE) (CAPSULES) [Suspect]
     Indication: MULTIPLE MYELOMA
     Dosage: 25 MG, DAILY, ORAL
     Route: 048
     Dates: start: 20071003
  2. DEXAMETHASONE TAB [Suspect]
     Indication: MULTIPLE MYELOMA
     Dates: start: 20071003
  3. WARFARIN SODIUM [Concomitant]

REACTIONS (4)
  - DISEASE COMPLICATION [None]
  - HAEMORRHAGE [None]
  - MULTIPLE MYELOMA [None]
  - SKIN LACERATION [None]
